FAERS Safety Report 7110201-X (Version None)
Quarter: 2010Q4

REPORT INFORMATION
  Report Type: 
  Country: None (occurrence: None)
  Receive Date: 20101117
  Receipt Date: 20101117
  Transmission Date: 20110411
  Serious: Yes (Hospitalization)
  Sender: FDA-Public Use
  Company Number: None

PATIENT
  Age: 58 Year
  Sex: Female
  Weight: 70.3075 kg

DRUGS (3)
  1. CLARITHROMYCIN [Suspect]
     Indication: COUGH
     Dosage: TWICE DAILY 2 X ORALLY
     Route: 048
     Dates: start: 20101011, end: 20101015
  2. CLARITHROMYCIN [Suspect]
     Indication: VIRAL INFECTION
     Dosage: TWICE DAILY 2 X ORALLY
     Route: 048
     Dates: start: 20101011, end: 20101015
  3. LOSARTAN TABS 50 MG. SANDOZ [Suspect]
     Indication: HYPERTENSION
     Dosage: ONCE DAILY 1 X ORALLY
     Route: 048
     Dates: start: 20101002, end: 20101015

REACTIONS (6)
  - COUGH [None]
  - INSOMNIA [None]
  - MENTAL STATUS CHANGES [None]
  - PALPITATIONS [None]
  - PRESSURE OF SPEECH [None]
  - PSYCHOMOTOR HYPERACTIVITY [None]
